FAERS Safety Report 10145798 (Version 1)
Quarter: 2014Q2

REPORT INFORMATION
  Report Type: Spontaneous
  Country: US (occurrence: US)
  Receive Date: 20140501
  Receipt Date: 20140501
  Transmission Date: 20141212
  Serious: No
  Sender: FDA-Public Use
  Company Number: US-ABBVIE-14P-163-1208694-00

PATIENT
  Age: 63 Year
  Sex: Male
  Weight: 81.72 kg

DRUGS (2)
  1. CREON [Suspect]
     Indication: PANCREATITIS CHRONIC
     Dosage: 1 CAPSULE WITH EACH MEAL
     Dates: start: 201312, end: 20140224
  2. CREON [Suspect]
     Dosage: 2 CAPS WITH EACH MEAL
     Dates: start: 20140225

REACTIONS (1)
  - Steatorrhoea [Not Recovered/Not Resolved]
